FAERS Safety Report 9553378 (Version 1)
Quarter: 2013Q3

REPORT INFORMATION
  Report Type: Spontaneous
  Country: US (occurrence: None)
  Receive Date: 20130913
  Receipt Date: 20130913
  Transmission Date: 20140515
  Serious: Yes (Other)
  Sender: FDA-Public Use
  Company Number: 1000045823

PATIENT
  Age: 62 Year
  Sex: Female
  Weight: 71.6 kg

DRUGS (8)
  1. CELEXA [Suspect]
     Indication: DEPRESSION
     Route: 048
     Dates: start: 2013, end: 2013
  2. NIFEDIPINE [Suspect]
     Dates: start: 2013
  3. ATENOLOL [Suspect]
     Indication: HYPERTENSION
  4. PROBENECID(PROBENECIDE)(PROBENECID) [Concomitant]
  5. PRAVASTATIN(PRAVASTATIN)(PRAVASTATIN) [Concomitant]
  6. ASPIRIN(ACETYLSALICYLIC ACID)(ACETYLSALICYLIC ACID) [Concomitant]
  7. PREVACID(LANSOPRAZOLE)(LANSOPRAZOLE) [Concomitant]
  8. NEURONTIN (GABAPENTIN) (GABAPENTIN) [Concomitant]

REACTIONS (6)
  - Urinary retention [None]
  - Malaise [None]
  - Oedema mucosal [None]
  - Rhinitis [None]
  - Feeling abnormal [None]
  - Drug hypersensitivity [None]
